FAERS Safety Report 9802779 (Version 1)
Quarter: 2014Q1

REPORT INFORMATION
  Report Type: Spontaneous
  Country: FR (occurrence: FR)
  Receive Date: 20140108
  Receipt Date: 20140108
  Transmission Date: 20141002
  Serious: Yes (Hospitalization)
  Sender: FDA-Public Use
  Company Number: FR-009507513-1401FRA000726

PATIENT
  Age: 52 Year
  Sex: Male

DRUGS (9)
  1. ISENTRESS [Suspect]
     Dosage: UNK
     Route: 048
     Dates: start: 2000, end: 20120319
  2. TRUVADA [Concomitant]
     Dosage: UNK
     Route: 048
     Dates: start: 2000, end: 20120319
  3. OMACOR [Concomitant]
     Dosage: 1 DF, QD
     Route: 048
  4. CARDENSIEL [Concomitant]
     Indication: HYPERTENSION
     Dosage: 3.75 MG, BID
     Route: 048
  5. DEROXAT [Concomitant]
     Indication: DEPRESSION
     Dosage: 20 MG, QD
     Route: 048
     Dates: end: 20120615
  6. ELISOR [Concomitant]
     Indication: HYPERCHOLESTEROLAEMIA
     Dosage: 40 MG, QD
     Route: 048
  7. IKOREL [Concomitant]
     Dosage: 10 MG, BID
     Route: 048
  8. KARDEGIC [Concomitant]
     Dosage: 75 MG, QD
     Route: 048
  9. INEXIUM [Concomitant]
     Dosage: 40 MG, QD
     Route: 048
     Dates: end: 201106

REACTIONS (1)
  - Haemolytic anaemia [Recovered/Resolved]
